FAERS Safety Report 6243173 (Version 4)
Quarter: 2013Q3

REPORT INFORMATION
  Report Type: Spontaneous
  Country: US (occurrence: US)
  Receive Date: 20070222
  Receipt Date: 20130801
  Transmission Date: 20140515
  Serious: Yes (Life-Threatening, Hospitalization, Other)
  Sender: FDA-Public Use
  Company Number: US-GLAXOSMITHKLINE-A0634488A

PATIENT
  Age: 15 Year
  Sex: Female
  Weight: 70.5 kg

DRUGS (1)
  1. LAMICTAL [Suspect]
     Indication: BIPOLAR DISORDER
     Dosage: 200MG PER DAY
     Route: 048
     Dates: start: 20061110, end: 20061224

REACTIONS (8)
  - Stevens-Johnson syndrome [Recovering/Resolving]
  - Toxic epidermal necrolysis [Unknown]
  - Corneal abrasion [Unknown]
  - Visual impairment [Unknown]
  - Oral mucosal blistering [Unknown]
  - Blister [Unknown]
  - Eye pruritus [Unknown]
  - Rash [Unknown]
